FAERS Safety Report 4822778-5 (Version None)
Quarter: 2005Q4

REPORT INFORMATION
  Report Type: 
  Country: None (occurrence: None)
  Receive Date: 20051104
  Receipt Date: 20051025
  Transmission Date: 20060501
  Serious: Yes (Hospitalization)
  Sender: FDA-Public Use
  Company Number: JP-2005-018530

PATIENT
  Age: 71 Year
  Sex: Female
  Weight: 48 kg

DRUGS (16)
  1. FLUDARA [Suspect]
     Indication: CHRONIC LYMPHOCYTIC LEUKAEMIA
     Dosage: SEE IMAGE
     Route: 041
     Dates: start: 20050509, end: 20050513
  2. FLUDARA [Suspect]
     Indication: CHRONIC LYMPHOCYTIC LEUKAEMIA
     Dosage: SEE IMAGE
     Route: 041
     Dates: start: 20050602, end: 20050606
  3. FLUDARA [Suspect]
     Indication: CHRONIC LYMPHOCYTIC LEUKAEMIA
     Dosage: SEE IMAGE
     Route: 041
     Dates: start: 20050630, end: 20050704
  4. FLUDARA [Suspect]
     Indication: CHRONIC LYMPHOCYTIC LEUKAEMIA
     Dosage: SEE IMAGE
     Route: 041
     Dates: start: 20050802, end: 20050806
  5. DIFLUCAN (FLUCONAZOLE) CAPSULE [Concomitant]
  6. MARZULENE S (SODIUM GUALENATE, LEVOGLUTAMIDE) GRANULES [Concomitant]
  7. EMPYNASE P (PRONASE) TABLET [Concomitant]
  8. CLARITHROMYCIN [Concomitant]
  9. BAKTAR GRANULES [Concomitant]
  10. THEOLONG TABLET [Concomitant]
  11. SENNOSIDE A+B (SENNOSIDE A+B) TABLET [Concomitant]
  12. SINGULAIR (MONTELUKAST) TABLET [Concomitant]
  13. PARIET (RABEPRAZOLE SODIUM) TABLET [Concomitant]
  14. MOBIC [Concomitant]
  15. VENOGLOBULIN-IH (IMMUNOGLOBULIN HUMAN NORMAL) INFUSION [Concomitant]
  16. HUSCODE (METHYLEPHEDRINE HYDROCHLORIDE-DL, HYDROCODEINE PHOSPHATE, CHL [Concomitant]

REACTIONS (11)
  - ALANINE AMINOTRANSFERASE INCREASED [None]
  - ANAEMIA HAEMOLYTIC AUTOIMMUNE [None]
  - ASPARTATE AMINOTRANSFERASE INCREASED [None]
  - BLOOD ALKALINE PHOSPHATASE INCREASED [None]
  - BLOOD LACTATE DEHYDROGENASE INCREASED [None]
  - CARDIAC FAILURE CONGESTIVE [None]
  - DISSEMINATED INTRAVASCULAR COAGULATION [None]
  - GAMMA-GLUTAMYLTRANSFERASE INCREASED [None]
  - HEPATIC FUNCTION ABNORMAL [None]
  - SHOCK HAEMORRHAGIC [None]
  - SOMNOLENCE [None]
